FAERS Safety Report 12273625 (Version 2)
Quarter: 2016Q3

REPORT INFORMATION
  Report Type: Spontaneous
  Country: GB (occurrence: GB)
  Receive Date: 20160415
  Receipt Date: 20160816
  Transmission Date: 20161109
  Serious: Yes (Congenital Anomaly)
  Sender: FDA-Public Use
  Company Number: GB-WATSON-2016-07243

PATIENT
  Sex: Female
  Weight: 3.06 kg

DRUGS (4)
  1. AZATHIOPRINE (UNKNOWN) [Suspect]
     Active Substance: AZATHIOPRINE
     Indication: DERMATOMYOSITIS
     Dosage: 150 MG, DAILY
     Route: 064
  2. ADCAL D3 [Concomitant]
     Active Substance: CALCIUM CARBONATE\CHOLECALCIFEROL
     Indication: PRODUCT USED FOR UNKNOWN INDICATION
     Dosage: 1 DF, BID
     Route: 064
  3. COCODAMOL [Concomitant]
     Active Substance: ACETAMINOPHEN\CODEINE PHOSPHATE
     Indication: PRODUCT USED FOR UNKNOWN INDICATION
     Dosage: 2 DF, BID
     Route: 064
  4. PREDNISOLONE (UNKNOWN) [Suspect]
     Active Substance: PREDNISOLONE
     Indication: DERMATOMYOSITIS
     Dosage: 10 MG, DAILY
     Route: 064

REACTIONS (10)
  - Abnormal palmar/plantar creases [Not Recovered/Not Resolved]
  - Cranial sutures widening [Not Recovered/Not Resolved]
  - Pierre Robin syndrome [Not Recovered/Not Resolved]
  - Cleft palate [Recovered/Resolved]
  - Strabismus congenital [Not Recovered/Not Resolved]
  - Cardiac murmur [Not Recovered/Not Resolved]
  - Cafe au lait spots [Not Recovered/Not Resolved]
  - Myopia [Not Recovered/Not Resolved]
  - Foetal exposure during pregnancy [Unknown]
  - Eye disorder [Not Recovered/Not Resolved]

NARRATIVE: CASE EVENT DATE: 20150227
